FAERS Safety Report 20058649 (Version 1)
Quarter: 2021Q4

REPORT INFORMATION
  Report Type: Spontaneous
  Country: US (occurrence: None)
  Receive Date: 20211111
  Receipt Date: 20211111
  Transmission Date: 20220303
  Serious: Yes (Hospitalization)
  Sender: FDA-Public Use
  Company Number: None

PATIENT
  Age: 76 Year
  Sex: Male
  Weight: 95.4 kg

DRUGS (2)
  1. CARBOPLATIN [Suspect]
     Active Substance: CARBOPLATIN
     Dates: end: 20211008
  2. ALIMTA [Suspect]
     Active Substance: PEMETREXED DISODIUM
     Dates: end: 20211008

REACTIONS (10)
  - Decreased appetite [None]
  - Diarrhoea [None]
  - Dizziness [None]
  - Syncope [None]
  - Hypoglycaemia [None]
  - Anaemia [None]
  - Oesophageal ulcer haemorrhage [None]
  - Therapy interrupted [None]
  - Small intestinal haemorrhage [None]
  - Giardia test positive [None]

NARRATIVE: CASE EVENT DATE: 20211030
